FAERS Safety Report 21865833 (Version 1)
Quarter: 2023Q1

REPORT INFORMATION
  Report Type: Spontaneous
  Country: PL (occurrence: PL)
  Receive Date: 20230116
  Receipt Date: 20230116
  Transmission Date: 20230418
  Serious: Yes (Hospitalization)
  Sender: FDA-Public Use
  Company Number: PL-KRKA-PL2022K16926LIT

PATIENT
  Age: 52 Year
  Sex: Male

DRUGS (5)
  1. TROPICAMIDE [Suspect]
     Active Substance: TROPICAMIDE
     Indication: Uveitis
     Dosage: UNK
     Route: 047
  2. DEXAMETHASONE [Suspect]
     Active Substance: DEXAMETHASONE
     Indication: Uveitis
     Dosage: IN EYE DROPS
     Route: 065
  3. DEXAMETHASONE [Suspect]
     Active Substance: DEXAMETHASONE
     Dosage: INITIAL DOSE 6 MG, (IN DECREASING DOSES)
     Route: 042
     Dates: start: 2010
  4. PREDNISONE [Suspect]
     Active Substance: PREDNISONE
     Indication: Product used for unknown indication
     Dosage: 10 MG
     Route: 048
  5. SULFASALAZINE [Suspect]
     Active Substance: SULFASALAZINE
     Indication: Ankylosing spondylitis
     Dosage: 2 G, QD
     Route: 065

REACTIONS (3)
  - Cataract [Recovered/Resolved]
  - Drug ineffective [Recovered/Resolved]
  - Drug intolerance [Unknown]
